FAERS Safety Report 16829637 (Version 4)
Quarter: 2019Q4

REPORT INFORMATION
  Report Type: Spontaneous
  Country: JP (occurrence: JP)
  Receive Date: 20190919
  Receipt Date: 20191128
  Transmission Date: 20200122
  Serious: Yes (Death, Hospitalization, Other)
  Sender: FDA-Public Use
  Company Number: JP-009507513-1909JPN001760J

PATIENT
  Age: 77 Year
  Sex: Male
  Weight: 46 kg

DRUGS (3)
  1. KEYTRUDA [Suspect]
     Active Substance: PEMBROLIZUMAB
     Indication: NON-SMALL CELL LUNG CANCER
     Dosage: 200 MILLIGRAM, Q3W
     Route: 041
     Dates: start: 20190419, end: 20190704
  2. PEMETREXED DISODIUM [Concomitant]
     Active Substance: PEMETREXED DISODIUM
     Indication: NON-SMALL CELL LUNG CANCER
     Dosage: 400 MILLIGRAM/SQ. METER, Q3W
     Route: 042
     Dates: start: 20190419, end: 20190704
  3. CARBOPLATIN. [Concomitant]
     Active Substance: CARBOPLATIN
     Indication: NON-SMALL CELL LUNG CANCER
     Dosage: AUC4, Q3W
     Route: 042
     Dates: start: 20190419, end: 20190704

REACTIONS (6)
  - Haemoptysis [Unknown]
  - Abdominal pain [Unknown]
  - Pyrexia [Recovered/Resolved]
  - Melaena [Unknown]
  - Decreased appetite [Recovering/Resolving]
  - Interstitial lung disease [Fatal]

NARRATIVE: CASE EVENT DATE: 2019
